FAERS Safety Report 8596104-2 (Version None)
Quarter: 2012Q3

REPORT INFORMATION
  Report Type: 
  Country: None (occurrence: None)
  Receive Date: 20120807
  Receipt Date: 20120807
  Transmission Date: 20120928
  Serious: Yes (Other)
  Sender: FDA-Public Use
  Company Number: None

PATIENT
  Age: 72 Year
  Sex: Male
  Weight: 86.1834 kg

DRUGS (2)
  1. LISINOPRIL [Suspect]
     Indication: HYPERTENSION
     Dosage: 90 PILLS 1/DAY BY MOUTH
     Route: 048
     Dates: start: 20120427
  2. LISINOPRIL [Suspect]
     Indication: HYPERTENSION
     Dosage: 90 PILLS 1/DAY BY MOUTH
     Route: 048
     Dates: start: 20120424

REACTIONS (1)
  - COUGH [None]
